FAERS Safety Report 12887291 (Version 1)
Quarter: 2016Q4

REPORT INFORMATION
  Report Type: Report from Study
  Country: US (occurrence: US)
  Receive Date: 20161026
  Receipt Date: 20161026
  Transmission Date: 20170207
  Serious: Yes (Death, Hospitalization)
  Sender: FDA-Public Use
  Company Number: US-JAZZ-2012-US-000447

PATIENT
  Age: 22 Year
  Sex: Male

DRUGS (16)
  1. FOLIC ACID. [Concomitant]
     Active Substance: FOLIC ACID
     Indication: HYPOVITAMINOSIS
     Dosage: 1 MG, QD
     Route: 048
     Dates: start: 20120205
  2. LEVETIRACETAM. [Concomitant]
     Active Substance: LEVETIRACETAM
     Indication: SEIZURE
     Dosage: 1000 MG
     Route: 048
     Dates: start: 20120518
  3. URSODIOL. [Concomitant]
     Active Substance: URSODIOL
     Indication: BILIARY CIRRHOSIS PRIMARY
     Dosage: 600 MG, DAILY
     Route: 048
     Dates: start: 20120205
  4. FUROSEMIDE. [Concomitant]
     Active Substance: FUROSEMIDE
     Dosage: 15 MG
     Route: 042
     Dates: start: 20120214
  5. ACYCLOVIR. [Concomitant]
     Active Substance: ACYCLOVIR
     Indication: ANTIVIRAL TREATMENT
     Dosage: 200 MG, QD
     Route: 048
     Dates: start: 20111118
  6. VORICONAZOLE. [Concomitant]
     Active Substance: VORICONAZOLE
     Indication: ANTIFUNGAL TREATMENT
     Dosage: 400 MG, DAILY
     Dates: start: 20111118
  7. CALCIUM CARBONATE. [Concomitant]
     Active Substance: CALCIUM CARBONATE
     Dosage: 1500 MG
     Route: 048
     Dates: start: 20120214
  8. METHYLPREDNISOLONE. [Concomitant]
     Active Substance: METHYLPREDNISOLONE
     Indication: ANALGESIC INTERVENTION SUPPORTIVE THERAPY
     Dosage: 150 MG, DAILY
     Route: 042
     Dates: start: 20120208
  9. DEFIBROTIDE (INV) [Suspect]
     Active Substance: DEFIBROTIDE SODIUM
     Indication: VENOOCCLUSIVE LIVER DISEASE
     Dosage: 1760 MG DAILY FOR 3 WEEKS 0 DAYS 25 MG/KG/DAY
     Route: 042
     Dates: start: 20111201, end: 20111222
  10. VASOTEC [Concomitant]
     Active Substance: ENALAPRIL MALEATE
     Indication: HYPERTENSION
     Dosage: 15 MG, DAILY
     Route: 048
     Dates: start: 20121216
  11. VENLAFAXINE [Concomitant]
     Active Substance: VENLAFAXINE HYDROCHLORIDE
     Indication: DEPRESSION
     Dosage: 225 MG, QD
     Route: 048
     Dates: start: 20110620
  12. ERGOCALCIFEROL. [Concomitant]
     Active Substance: ERGOCALCIFEROL
     Indication: OSTEOMALACIA
     Dosage: 50,0000, 2?WEEK
     Route: 048
     Dates: start: 20121211
  13. FUROSEMIDE. [Concomitant]
     Active Substance: FUROSEMIDE
     Indication: BLOOD ANTIDIURETIC HORMONE
     Dosage: 7.5 MG
     Route: 042
     Dates: start: 20120214
  14. FILGRASTIM [Concomitant]
     Active Substance: FILGRASTIM
     Indication: NEUTROPENIA
     Dosage: 480 MG, DAILY
     Dates: start: 20120213
  15. CARVEDILOL. [Concomitant]
     Active Substance: CARVEDILOL
     Indication: HYPERTENSION
     Dosage: 12.5 MG, DAILY
     Route: 048
     Dates: start: 20111216
  16. NEUROTIN [Concomitant]
     Active Substance: GABAPENTIN
     Indication: NEURALGIA
     Dosage: 900 M, DAILY
     Route: 048
     Dates: start: 20121223

REACTIONS (2)
  - Blood bilirubin increased [Fatal]
  - Graft versus host disease [Fatal]

NARRATIVE: CASE EVENT DATE: 20120209
